FAERS Safety Report 16980406 (Version 1)
Quarter: 2019Q4

REPORT INFORMATION
  Report Type: Spontaneous
  Country: CN (occurrence: CN)
  Receive Date: 20191031
  Receipt Date: 20191031
  Transmission Date: 20200122
  Serious: No
  Sender: FDA-Public Use
  Company Number: CN-ELI_LILLY_AND_COMPANY-CN201910011404

PATIENT
  Sex: Male
  Weight: 72 kg

DRUGS (1)
  1. TADALAFIL 5MG [Suspect]
     Active Substance: TADALAFIL
     Indication: SEXUAL DYSFUNCTION
     Dosage: 5 MG, DAILY
     Route: 048
     Dates: start: 20190823, end: 20191019

REACTIONS (3)
  - Eye disorder [Unknown]
  - Vision blurred [Unknown]
  - Off label use [Unknown]

NARRATIVE: CASE EVENT DATE: 20191019
